FAERS Safety Report 6029751-2 (Version None)
Quarter: 2008Q4

REPORT INFORMATION
  Report Type: 
  Country: None (occurrence: None)
  Receive Date: 20081222
  Receipt Date: 20080916
  Transmission Date: 20090506
  Serious: No
  Sender: FDA-Public Use
  Company Number: US-WYE-H06022608

PATIENT
  Age: 49 Year
  Sex: Female

DRUGS (5)
  1. PRISTIQ [Suspect]
     Indication: ANXIETY
     Dates: start: 20080804
  2. LYRICA [Suspect]
     Indication: FIBROMYALGIA
     Dates: start: 20080804
  3. OMEPRAZOLE [Concomitant]
  4. LORTAB [Concomitant]
  5. SYNTHROID [Concomitant]

REACTIONS (2)
  - ARTHRALGIA [None]
  - MYALGIA [None]
